FAERS Safety Report 24918838 (Version 2)
Quarter: 2025Q1

REPORT INFORMATION
  Report Type: Report from Study
  Country: US (occurrence: US)
  Receive Date: 20250204
  Receipt Date: 20250303
  Transmission Date: 20250409
  Serious: Yes (Hospitalization, Other)
  Sender: JAZZ
  Company Number: US-JAZZ PHARMACEUTICALS-2024-US-018011

PATIENT
  Age: 20 Year
  Sex: Male

DRUGS (5)
  1. EPIDIOLEX [Suspect]
     Active Substance: CANNABIDIOL
     Indication: Partial seizures
     Dosage: 1 MILLILITER, BID
     Route: 048
     Dates: start: 20241005
  2. EPIDIOLEX [Suspect]
     Active Substance: CANNABIDIOL
     Dosage: 1 GRAM, BID
     Route: 048
  3. EPIDIOLEX [Suspect]
     Active Substance: CANNABIDIOL
     Dosage: 1 MILLILITER, BID
     Route: 048
     Dates: start: 202410
  4. EPIDIOLEX [Suspect]
     Active Substance: CANNABIDIOL
     Dosage: 2 MILLILITER, BID
     Route: 048
     Dates: start: 20241105
  5. CANNABIS SATIVA SUBSP. INDICA TOP [Suspect]
     Active Substance: CANNABIS SATIVA SUBSP. INDICA TOP
     Indication: Product used for unknown indication

REACTIONS (6)
  - Seizure [Unknown]
  - Status epilepticus [Not Recovered/Not Resolved]
  - Seizure [Not Recovered/Not Resolved]
  - Seizure [Recovered/Resolved]
  - Substance use [Not Recovered/Not Resolved]
  - Off label use [Unknown]

NARRATIVE: CASE EVENT DATE: 20241005
